FAERS Safety Report 6240591-1 (Version None)
Quarter: 2009Q2

REPORT INFORMATION
  Report Type: 
  Country: None (occurrence: None)
  Receive Date: 20090623
  Receipt Date: 20081020
  Transmission Date: 20091009
  Serious: No
  Sender: FDA-Public Use
  Company Number: US-ASTRAZENECA-2008UW23186

PATIENT
  Sex: Female

DRUGS (20)
  1. PULMICORT RESPULES [Suspect]
     Route: 055
  2. XOPENEX [Concomitant]
  3. ARIMIDEX [Concomitant]
  4. REGLAN [Concomitant]
  5. CARDIZEM [Concomitant]
  6. IMDUR [Concomitant]
  7. SEROQUEL [Concomitant]
  8. SYNTHROID [Concomitant]
  9. GLUCOTROL [Concomitant]
  10. DESYREL [Concomitant]
  11. FLEXERIL [Concomitant]
  12. ZETIA [Concomitant]
  13. CELEBREX [Concomitant]
  14. ALBUTEROL [Concomitant]
  15. NOVOLOG [Concomitant]
  16. LANTUS [Concomitant]
  17. IRON [Concomitant]
  18. DARVOCET [Concomitant]
  19. VICODIN [Concomitant]
  20. ZOCOR [Concomitant]

REACTIONS (1)
  - BLOOD GLUCOSE INCREASED [None]
